FAERS Safety Report 10014987 (Version 1)
Quarter: 2014Q1

REPORT INFORMATION
  Report Type: Spontaneous
  Country: DE (occurrence: DE)
  Receive Date: 20140317
  Receipt Date: 20140317
  Transmission Date: 20141002
  Serious: Yes (Other)
  Sender: FDA-Public Use
  Company Number: DE-TEVA-468014GER

PATIENT
  Age: 14 Year
  Sex: Female
  Weight: 64.1 kg

DRUGS (1)
  1. DOXYCYCLIN [Suspect]
     Indication: NEUROBORRELIOSIS
     Route: 048

REACTIONS (4)
  - Respiratory distress [Recovered/Resolved]
  - Dizziness [Recovered/Resolved]
  - Hyperventilation [Recovered/Resolved]
  - Sensation of foreign body [Recovered/Resolved]
